FAERS Safety Report 6673689-4 (Version None)
Quarter: 2010Q2

REPORT INFORMATION
  Report Type: 
  Country: None (occurrence: None)
  Receive Date: 20100408
  Receipt Date: 20100330
  Transmission Date: 20101027
  Serious: Yes (Other)
  Sender: FDA-Public Use
  Company Number: US-AMGEN-QUU403021

PATIENT
  Sex: Female

DRUGS (1)
  1. ENBREL [Suspect]
     Indication: JUVENILE ARTHRITIS
     Route: 058
     Dates: start: 20060504

REACTIONS (6)
  - DIARRHOEA HAEMORRHAGIC [None]
  - FATIGUE [None]
  - HYPOGLYCAEMIA [None]
  - MUSCULAR WEAKNESS [None]
  - PETIT MAL EPILEPSY [None]
  - TREMOR [None]
